FAERS Safety Report 11414812 (Version 1)
Quarter: 2015Q3

REPORT INFORMATION
  Report Type: Spontaneous
  Country: GB (occurrence: None)
  Receive Date: 20150821
  Receipt Date: 20150821
  Transmission Date: 20151125
  Serious: Yes (Other)
  Sender: FDA-Public Use
  Company Number: GB-2015-VAL000521

PATIENT
  Age: 47 Year
  Sex: Male

DRUGS (1)
  1. METOPROLOL TARTRATE (METOPROLOL TARTRATE) UNKNOWN [Suspect]
     Active Substance: METOPROLOL TARTRATE
     Indication: PRODUCT USED FOR UNKNOWN INDICATION
     Route: 048
     Dates: start: 20150713

REACTIONS (5)
  - Tachycardia [None]
  - Insomnia [None]
  - Product substitution issue [None]
  - Stress [None]
  - Agitation [None]

NARRATIVE: CASE EVENT DATE: 20150713
